FAERS Safety Report 21488340 (Version 1)
Quarter: 2022Q4

REPORT INFORMATION
  Report Type: Spontaneous
  Country: FR (occurrence: FR)
  Receive Date: 20221020
  Receipt Date: 20221020
  Transmission Date: 20230113
  Serious: Yes (Other)
  Sender: FDA-Public Use
  Company Number: FR-BIOGEN-2022BI01163003

PATIENT
  Sex: Female

DRUGS (2)
  1. TECFIDERA [Suspect]
     Active Substance: DIMETHYL FUMARATE
     Indication: Multiple sclerosis
     Route: 050
     Dates: start: 2014
  2. GARDASIL [Concomitant]
     Active Substance: HUMAN PAPILLOMAVIRUS QUADRIVALENT (TYPES 6, 11, 16, AND 18) VACCINE, RECOMBINANT
     Indication: Papilloma viral infection
     Route: 050
     Dates: start: 2019

REACTIONS (4)
  - Neoplasm malignant [Not Recovered/Not Resolved]
  - Anogenital warts [Unknown]
  - Human papilloma virus test positive [Not Recovered/Not Resolved]
  - Dysplasia [Not Recovered/Not Resolved]

NARRATIVE: CASE EVENT DATE: 20140101
